FAERS Safety Report 5215414-X (Version None)
Quarter: 2007Q1

REPORT INFORMATION
  Report Type: 
  Country: None (occurrence: None)
  Receive Date: 20070118
  Receipt Date: 20070110
  Transmission Date: 20070707
  Serious: Yes (Hospitalization)
  Sender: FDA-Public Use
  Company Number: 2007SP000570

PATIENT
  Age: 54 Year
  Sex: Male

DRUGS (2)
  1. PEG-INTRON [Suspect]
     Indication: HEPATITIS C
     Dosage: SC
     Route: 058
     Dates: start: 20060922, end: 20061202
  2. RIBAVIRIN [Suspect]
     Indication: HEPATITIS C
     Dosage: PO
     Route: 048
     Dates: start: 20060922, end: 20061202

REACTIONS (6)
  - ANAEMIA [None]
  - DIZZINESS [None]
  - HYPERTENSION [None]
  - HYPOTENSION [None]
  - SYNCOPE VASOVAGAL [None]
  - VOMITING [None]
